FAERS Safety Report 7391685-9 (Version None)
Quarter: 2011Q2

REPORT INFORMATION
  Report Type: 
  Country: None (occurrence: None)
  Receive Date: 20110404
  Receipt Date: 20110204
  Transmission Date: 20111010
  Serious: Yes (Hospitalization)
  Sender: FDA-Public Use
  Company Number: US-BAYER-201034573NA

PATIENT
  Sex: Female
  Weight: 52 kg

DRUGS (3)
  1. HYDROCODONE BITARTRATE AND ACETAMINOPHEN [Concomitant]
     Dosage: UNK
     Route: 048
     Dates: start: 20080513
  2. YAZ [Suspect]
     Indication: PREMENSTRUAL SYNDROME
     Dosage: UNK UNK, QD
     Route: 048
     Dates: start: 20080603, end: 20080701
  3. PENICILLIN VK [Concomitant]
     Dosage: 500 MG, QID
     Route: 048
     Dates: start: 20080509

REACTIONS (1)
  - PULMONARY EMBOLISM [None]
